FAERS Safety Report 7545578-4 (Version None)
Quarter: 2011Q2

REPORT INFORMATION
  Report Type: 
  Country: None (occurrence: None)
  Receive Date: 20110614
  Receipt Date: 20110607
  Transmission Date: 20111010
  Serious: Yes (Other)
  Sender: FDA-Public Use
  Company Number: JP-B.I. PHARMACEUTICALS,INC./RIDGEFIELD-2011-BP-14586NB

PATIENT
  Age: 84 Year
  Sex: Male

DRUGS (8)
  1. LIPITOR [Concomitant]
     Dosage: 10 MG
     Route: 048
  2. TRICHLORMETHIAZIDE [Concomitant]
     Dosage: 2 MG
     Route: 048
  3. CARVEDILOL [Concomitant]
     Dosage: 2.5 MG
     Route: 048
  4. LASIX [Concomitant]
     Dosage: 20 MG
     Route: 048
  5. LANSOPRAZOLE [Concomitant]
     Dosage: 15 MG
     Route: 048
  6. ADALAT [Concomitant]
     Dosage: 20 MG
     Route: 048
  7. PRADAXA [Suspect]
     Indication: ATRIAL FIBRILLATION
     Dosage: 220 MG
     Route: 048
     Dates: start: 20110323, end: 20110531
  8. ALOSITOL [Concomitant]
     Dosage: 100 MG
     Route: 048

REACTIONS (1)
  - INFARCTION [None]
